FAERS Safety Report 8505671 (Version 14)
Quarter: 2013Q2

REPORT INFORMATION
  Report Type: Report from Study
  Country: JP (occurrence: JP)
  Receive Date: 20120412
  Receipt Date: 20130619
  Transmission Date: 20140414
  Serious: Yes (Death, Life-Threatening, Hospitalization)
  Sender: FDA-Public Use
  Company Number: PHHO2012JP002456

PATIENT
  Age: 64 Year
  Sex: Male
  Weight: 59 kg

DRUGS (49)
  1. ALISKIREN [Suspect]
     Indication: CARDIAC FAILURE
     Dosage: UNK
     Route: 048
     Dates: start: 20090916, end: 20120110
  2. ENALAPRIL [Suspect]
     Indication: CARDIAC FAILURE
     Dosage: UNK
     Dates: start: 20090916, end: 20120110
  3. TAKEPRON [Concomitant]
     Indication: PROPHYLAXIS AGAINST GASTROINTESTINAL ULCER
     Dosage: 15 MG, UNK
     Route: 048
     Dates: start: 20090422
  4. PLAVIX [Concomitant]
     Indication: THROMBOSIS PROPHYLAXIS
     Dosage: 75 MG, UNK
     Route: 048
     Dates: start: 20090422
  5. AMARYL [Concomitant]
     Indication: DIABETES MELLITUS
     Dosage: 2 MG, DAILY
     Route: 048
     Dates: start: 20090422, end: 20120918
  6. BAYASPIRIN [Concomitant]
     Indication: THROMBOSIS PROPHYLAXIS
     Dosage: 100 MG, DAILY
     Route: 048
     Dates: start: 20090422, end: 20130520
  7. JANUVIA [Concomitant]
     Indication: DIABETES MELLITUS
     Dosage: 100 MG, DAILY
     Route: 048
     Dates: start: 20090422, end: 20120918
  8. JANUVIA [Concomitant]
     Dosage: 50 MG, DAILY (1 TABLET PER DAY)
     Route: 048
     Dates: start: 20120923, end: 20130124
  9. ALDACTONE [Concomitant]
     Indication: POLYURIA
     Dosage: 25 MG, QD
     Route: 048
     Dates: start: 20090208, end: 20130520
  10. ALLORINE [Concomitant]
     Indication: HYPERURICAEMIA
     Dosage: 100 MG, BID
     Route: 048
     Dates: start: 20090422
  11. DIART [Concomitant]
     Indication: POLYURIA
     Dosage: 120 MG, UNK
     Route: 048
     Dates: start: 20090422
  12. DIART [Concomitant]
     Indication: CARDIAC FAILURE CHRONIC
     Dosage: 60 MG, QD
     Route: 048
     Dates: start: 20120519, end: 20130520
  13. MAGNESIUM OXIDE [Concomitant]
     Indication: CONSTIPATION PROPHYLAXIS
     Dosage: 990 MG, UNK
     Route: 048
     Dates: start: 20120301
  14. ARTIST [Concomitant]
     Indication: CARDIAC FAILURE CHRONIC
     Dosage: 1.25 MG, UNK
     Route: 048
     Dates: start: 20120302, end: 20130419
  15. LASIX [Concomitant]
     Indication: POLYURIA
     Dosage: 20 MG, UNK
     Route: 048
     Dates: start: 20120214, end: 20120227
  16. LASIX [Concomitant]
     Dosage: UNK
     Dates: end: 20130124
  17. LUPRAC [Concomitant]
     Indication: POLYURIA
     Dosage: 4 MG, UNK
     Route: 048
     Dates: start: 20120228
  18. LUPRAC [Concomitant]
     Dosage: 8 MG, UNK
     Route: 048
  19. ASPARA POTASSIUM [Concomitant]
     Indication: HYPOKALAEMIA
     Dosage: 600 MG, UNK
     Route: 048
     Dates: start: 20130208
  20. UNASYN [Concomitant]
     Indication: ANTIBIOTIC PROPHYLAXIS
     Dosage: 750 MG, QD
     Route: 048
     Dates: start: 20120313, end: 20120315
  21. UNASYN [Concomitant]
     Indication: NASOPHARYNGITIS
     Dosage: 750 MG, DAILY
     Route: 048
     Dates: start: 20120914, end: 20120916
  22. FUROSEMIDE [Concomitant]
     Indication: POLYURIA
     Dosage: 40 MG, QD
     Route: 048
     Dates: start: 20120519
  23. FUROSEMIDE [Concomitant]
     Indication: CARDIAC FAILURE CHRONIC
     Dosage: 120 MG, QD
     Dates: start: 20120519
  24. PANTOL [Concomitant]
     Indication: MALNUTRITION
     Dosage: UNK
     Route: 042
     Dates: start: 20130202
  25. TANADOPA [Concomitant]
     Indication: CARDIAC FAILURE CHRONIC
     Dosage: 4 G, DAILY
     Route: 048
     Dates: start: 20120605
  26. TANADOPA [Concomitant]
     Dosage: 2 G, DAILY DAILY (ONCE AFTER BREAKFAST AND ONCE AFTER THE EVENING MEAL)
     Route: 048
     Dates: start: 20120605
  27. TANADOPA [Concomitant]
     Dosage: 1 G, DAILY (AFTER BREAKFAST)
     Route: 048
     Dates: start: 20120605, end: 20120921
  28. HUMULIN R [Concomitant]
     Indication: DIABETES MELLITUS
     Dosage: UNK
     Route: 042
     Dates: start: 20130205
  29. FLUITRAN [Concomitant]
     Indication: POLYURIA
     Dosage: 1 MG, UNK
     Route: 048
     Dates: start: 20120613
  30. FULCALIQ [Concomitant]
     Indication: MALNUTRITION
     Dosage: UNK
     Route: 042
     Dates: start: 20130208
  31. TETUCUR [Concomitant]
     Indication: ANAEMIA
     Dosage: 300 MG, UNK
     Route: 048
     Dates: start: 20120621
  32. TETUCUR [Concomitant]
     Indication: IRON DEFICIENCY ANAEMIA
     Dosage: 100 MG, UNK
     Route: 048
     Dates: start: 20120709
  33. VOLVIX [Concomitant]
     Indication: MALNUTRITION
     Dosage: UNK
     Route: 042
     Dates: start: 20130202
  34. SLOW-K [Concomitant]
     Indication: MINERAL SUPPLEMENTATION
     Dosage: 600 MG, DAILY
     Route: 048
     Dates: start: 20120619
  35. SLOW-K [Concomitant]
     Indication: HYPOKALAEMIA
     Dosage: 600 MG, DAILY
     Route: 048
  36. SLOW-K [Concomitant]
     Dosage: 1800 MG DAILY AFTER EVERY MEAL, IN ADDITION TO ROUTINE ADMINISTRATION OF 600 MG DAILY
     Route: 048
     Dates: start: 20120919, end: 20120924
  37. SLOW-K [Concomitant]
     Dosage: 1200 MG, DAILY (ONCE AFTER BREAKFAST AND ONCE AFTER THE EVENING MEAL)
     Route: 048
     Dates: start: 20120927
  38. SLOW-K [Concomitant]
     Dosage: 1800 MG, QD
     Dates: start: 20121127
  39. SLOW-K [Concomitant]
     Dosage: 1200 MG, QD
     Dates: start: 20130208
  40. SLOW-K [Concomitant]
     Dosage: 1200 UNK, UNK
     Route: 048
  41. PERAPRIN [Concomitant]
     Indication: VOMITING
     Dosage: 15 MG, UNK
     Dates: start: 20130125
  42. MUCOSTA [Concomitant]
     Indication: GASTRITIS PROPHYLAXIS
     Dosage: 300 MG, UNK
     Route: 048
     Dates: start: 20120709
  43. GLUCOSE [Concomitant]
     Indication: HYPOGLYCAEMIA
     Dosage: 80 ML, UNK
     Route: 042
     Dates: start: 20120918, end: 20130208
  44. NORMAL SALINE [Concomitant]
     Indication: ELECTROLYTE SUBSTITUTION THERAPY
     Dosage: UNK
     Route: 042
     Dates: start: 20120914, end: 20120918
  45. GASMOTIN [Concomitant]
     Indication: NAUSEA
     Dosage: 15 MG, UNK
     Route: 048
     Dates: start: 20130125
  46. NEXUM [Concomitant]
     Indication: PROPHYLAXIS AGAINST GASTROINTESTINAL ULCER
     Dosage: 20 MG, UNK
     Route: 048
     Dates: start: 20121229
  47. AMIODARONE HYDROCHLORIDE [Concomitant]
     Indication: VENTRICULAR TACHYCARDIA
     Dosage: 200 MG, UNK
     Dates: start: 20130208, end: 20130520
  48. ELIETEN [Concomitant]
     Indication: VOMITING
     Dosage: UNK
     Route: 042
     Dates: start: 20130202
  49. GLIMEPIRIDE [Concomitant]
     Indication: DIABETES MELLITUS
     Dosage: 2 MG, QD
     Route: 048
     Dates: start: 20120417, end: 20120918

REACTIONS (4)
  - Cardiac failure [Recovered/Resolved]
  - Adenocarcinoma gastric [Fatal]
  - Ventricular tachycardia [Recovered/Resolved]
  - Dehydration [Recovered/Resolved]
